FAERS Safety Report 4588948-9 (Version None)
Quarter: 2005Q1

REPORT INFORMATION
  Report Type: 
  Country: None (occurrence: None)
  Receive Date: 20050216
  Receipt Date: 20041223
  Transmission Date: 20050727
  Serious: No
  Sender: FDA-Public Use
  Company Number: 2004237550US

PATIENT
  Age: 79 Year
  Sex: Female
  Weight: 69.39 kg

DRUGS (12)
  1. CELEBREX [Suspect]
     Indication: ARTHRITIS
  2. METOPROLOL TARTRATE [Concomitant]
  3. TOCOPHEROL (TOCOPHEROL) [Concomitant]
  4. SIMVASTATIN [Concomitant]
  5. FUROSEMIDE [Concomitant]
  6. LEVOTHYROXINE SODIUM [Concomitant]
  7. CONJUGATED ESTROGENS [Concomitant]
  8. VITAMINS (VITAMINS) [Concomitant]
  9. CALCIUM CARBONATE (CALCIUM CARBONATE) [Concomitant]
  10. WARFARIN SODIUM [Concomitant]
  11. ESOMEPRAZOLE (ESOMEPRAZOLE) [Concomitant]
  12. RISEDRONATE SODIUM (RISEDRONATE SODIUM) [Concomitant]

REACTIONS (7)
  - ARTHRITIS [None]
  - ARTHROPOD BITE [None]
  - ATRIAL FIBRILLATION [None]
  - BURSITIS [None]
  - DRUG INEFFECTIVE [None]
  - MYOCARDIAL INFARCTION [None]
  - PAIN [None]
